FAERS Safety Report 6006175-5 (Version None)
Quarter: 2008Q4

REPORT INFORMATION
  Report Type: 
  Country: None (occurrence: None)
  Receive Date: 20081216
  Receipt Date: 20081216
  Transmission Date: 20090506
  Serious: Yes (Life-Threatening)
  Sender: FDA-Public Use
  Company Number: None

PATIENT
  Sex: Male
  Weight: 58.69 kg

DRUGS (1)
  1. VANCOMYCIN [Suspect]
     Dosage: 1000MG INFUSION

REACTIONS (3)
  - ARRHYTHMIA [None]
  - BODY TEMPERATURE INCREASED [None]
  - DYSPNOEA [None]
